FAERS Safety Report 9663740 (Version 2)
Quarter: 2013Q4

REPORT INFORMATION
  Report Type: Report from Study
  Country: DE (occurrence: DE)
  Receive Date: 20131101
  Receipt Date: 20131112
  Transmission Date: 20140711
  Serious: Yes (Hospitalization)
  Sender: FDA-Public Use
  Company Number: PHHY2013DE122394

PATIENT
  Sex: Female

DRUGS (2)
  1. FTY 720 [Suspect]
     Indication: MULTIPLE SCLEROSIS
     Dosage: 0.5 MG, QD
     Route: 048
     Dates: start: 20121008, end: 20131007
  2. L-THYROX [Concomitant]
     Dosage: 1 DF, QD

REACTIONS (2)
  - Breast cancer [Not Recovered/Not Resolved]
  - Metastases to lymph nodes [Unknown]
